FAERS Safety Report 10861350 (Version 1)
Quarter: 2015Q1

REPORT INFORMATION
  Report Type: Spontaneous
  Country: US (occurrence: None)
  Receive Date: 20150218
  Receipt Date: 20150218
  Transmission Date: 20150721
  Serious: No
  Sender: FDA-Public Use
  Company Number: None

PATIENT
  Age: 27 Year
  Sex: Male
  Weight: 101.8 kg

DRUGS (1)
  1. DIATRIZOATE [Suspect]
     Active Substance: DIATRIZOATE MEGLUMINE
     Route: 048
     Dates: start: 20150127, end: 20150127

REACTIONS (6)
  - Urticaria [None]
  - Angioedema [None]
  - Hypersensitivity [None]
  - Contrast media reaction [None]
  - Dyspnoea [None]
  - Pruritus [None]

NARRATIVE: CASE EVENT DATE: 20150127
